FAERS Safety Report 23600757 (Version 1)
Quarter: 2024Q1

REPORT INFORMATION
  Report Type: Spontaneous
  Country: CO (occurrence: CO)
  Receive Date: 20240306
  Receipt Date: 20240306
  Transmission Date: 20240410
  Serious: Yes (Death, Hospitalization, Other)
  Sender: FDA-Public Use
  Company Number: CO-BAXTER-2024BAX012409

PATIENT
  Age: 65 Year
  Sex: Female
  Weight: 45.5 kg

DRUGS (13)
  1. DIANEAL PD-2 WITH DEXTROSE [Suspect]
     Active Substance: CALCIUM CHLORIDE\DEXTROSE\MAGNESIUM CHLORIDE\SODIUM CHLORIDE\SODIUM LACTATE
     Indication: Peritoneal dialysis
     Dosage: 2 LITER, 2 BAGS PER DAY
     Route: 033
     Dates: start: 20230926
  2. DIANEAL PD-2 WITH DEXTROSE [Suspect]
     Active Substance: CALCIUM CHLORIDE\DEXTROSE\MAGNESIUM CHLORIDE\SODIUM CHLORIDE\SODIUM LACTATE
     Indication: Peritoneal dialysis
     Dosage: 2 LITER, 1 BAG PER DAY
     Route: 033
     Dates: start: 20230926
  3. ERYTHROPOIETIN [Concomitant]
     Active Substance: ERYTHROPOIETIN
     Dosage: 4000 INTERNATIONAL UNITS (IU), 3 TIMES PER WEEK
     Route: 058
     Dates: start: 20231218
  4. ESOMEPRAZOLE [Concomitant]
     Active Substance: ESOMEPRAZOLE
     Dosage: 20 MHG PER DAY
     Route: 048
     Dates: start: 20231218
  5. CLONIDINE [Concomitant]
     Active Substance: CLONIDINE
     Dosage: 150 MCG, EVERY 8 HOURS
     Route: 048
     Dates: start: 20231218
  6. PNEUMOCOCCAL VACCINE POLYVALENT [Concomitant]
     Active Substance: PNEUMOCOCCAL VACCINE POLYVALENT
     Dosage: UNK
     Route: 030
     Dates: start: 20231103
  7. INSULIN GLARGINE [Concomitant]
     Active Substance: INSULIN GLARGINE
     Dosage: 100 IU/ML PER 3ML, 15 IU DAILY
     Route: 058
     Dates: start: 20230926
  8. DAPAGLIFLOZIN [Concomitant]
     Active Substance: DAPAGLIFLOZIN
     Dosage: 10 MG, 1 PER DAY
     Route: 048
     Dates: start: 20230926
  9. LINAGLIPTIN [Concomitant]
     Active Substance: LINAGLIPTIN
     Dosage: 5 MG PER DAY
     Route: 048
     Dates: start: 20230926
  10. NIFEDIPINE [Concomitant]
     Active Substance: NIFEDIPINE
     Dosage: 30 MG, 1 EVERY 12 HOURS
     Route: 048
     Dates: start: 20230830
  11. LOSARTAN [Concomitant]
     Active Substance: LOSARTAN
     Dosage: 50 MG, 1 EVERY 12 HOURS
     Route: 048
     Dates: start: 20230830
  12. CARVEDILOL [Concomitant]
     Active Substance: CARVEDILOL
     Dosage: 12.5 MG, EVERY 12 HOURS
     Route: 048
     Dates: start: 20181219
  13. ASPIRIN [Concomitant]
     Active Substance: ASPIRIN
     Dosage: 100 MG PER DAY
     Route: 048
     Dates: start: 20230830

REACTIONS (2)
  - Death [Fatal]
  - Cerebrovascular accident [Unknown]

NARRATIVE: CASE EVENT DATE: 20240203
